FAERS Safety Report 18911024 (Version 2)
Quarter: 2021Q1

REPORT INFORMATION
  Report Type: Spontaneous
  Country: US (occurrence: US)
  Receive Date: 20210218
  Receipt Date: 20210329
  Transmission Date: 20210420
  Serious: Yes (Death)
  Sender: FDA-Public Use
  Company Number: US-PFIZER INC-2019454729

PATIENT
  Age: 76 Year
  Sex: Male

DRUGS (2)
  1. RETACRIT [Suspect]
     Active Substance: EPOETIN ALFA-EPBX
     Indication: CHRONIC KIDNEY DISEASE
     Dosage: 40,000 UNITS/ML , MONTHLY
  2. RETACRIT [Suspect]
     Active Substance: EPOETIN ALFA-EPBX
     Indication: NEPHROGENIC ANAEMIA

REACTIONS (4)
  - Off label use [Unknown]
  - Condition aggravated [Fatal]
  - Diabetes mellitus [Fatal]
  - Hypertension [Fatal]

NARRATIVE: CASE EVENT DATE: 20200819
